FAERS Safety Report 8022264-8 (Version None)
Quarter: 2011Q4

REPORT INFORMATION
  Report Type: 
  Country: None (occurrence: None)
  Receive Date: 20111123
  Receipt Date: 20110919
  Transmission Date: 20120403
  Serious: No
  Sender: FDA-Public Use
  Company Number: 335357

PATIENT
  Age: 42 Year
  Sex: Female

DRUGS (2)
  1. METFORMIN HCL [Concomitant]
  2. VICTOZA [Suspect]
     Indication: TYPE 2 DIABETES MELLITUS
     Dosage: 0.6 MG, QD, SUBCUTANEOUS 1.8 MG, QD, SUBCUTANEOUS
     Route: 058
     Dates: start: 20110731

REACTIONS (2)
  - DECREASED APPETITE [None]
  - NAUSEA [None]
